FAERS Safety Report 23087390 (Version 1)
Quarter: 2023Q4

REPORT INFORMATION
  Report Type: Spontaneous
  Country: GB (occurrence: GB)
  Receive Date: 20231020
  Receipt Date: 20231020
  Transmission Date: 20240109
  Serious: Yes (Death, Other)
  Sender: FDA-Public Use
  Company Number: None

PATIENT
  Age: 74 Year
  Sex: Male
  Weight: 78 kg

DRUGS (19)
  1. ENOXAPARIN SODIUM [Suspect]
     Active Substance: ENOXAPARIN SODIUM
     Indication: Portal vein thrombosis
     Route: 058
     Dates: start: 20170703
  2. CLARITHROMYCIN [Suspect]
     Active Substance: CLARITHROMYCIN
     Indication: Lower respiratory tract infection
     Route: 048
     Dates: start: 20180219, end: 20180222
  3. FERROUS FUMARATE [Concomitant]
     Active Substance: FERROUS FUMARATE
  4. MIRTAZAPINE [Concomitant]
     Active Substance: MIRTAZAPINE
  5. TEMAZEPAM [Concomitant]
     Active Substance: TEMAZEPAM
  6. PROCHLORPERAZINE [Concomitant]
     Active Substance: PROCHLORPERAZINE
  7. PREDNISOLONE [Concomitant]
     Active Substance: PREDNISOLONE
  8. SPIRONOLACTONE [Concomitant]
     Active Substance: SPIRONOLACTONE
  9. CASSIA [Concomitant]
  10. DIHYDROCODEINE [Concomitant]
     Active Substance: DIHYDROCODEINE
  11. OMEPRAZOLE [Concomitant]
     Active Substance: OMEPRAZOLE
  12. GLICLAZIDE [Concomitant]
     Active Substance: GLICLAZIDE
  13. AMOXICILLIN [Concomitant]
     Active Substance: AMOXICILLIN
  14. FUROSEMIDE [Concomitant]
     Active Substance: FUROSEMIDE
  15. FOLIC ACID [Concomitant]
     Active Substance: FOLIC ACID
  16. BECLOMETHASONE DIPROPIONATE [Concomitant]
     Active Substance: BECLOMETHASONE DIPROPIONATE
  17. CALCIUM CARBONATE\CHOLECALCIFEROL [Concomitant]
     Active Substance: CALCIUM CARBONATE\CHOLECALCIFEROL
  18. BISOPROLOL [Concomitant]
     Active Substance: BISOPROLOL\BISOPROLOL FUMARATE
  19. IBUPROFEN [Concomitant]
     Active Substance: IBUPROFEN

REACTIONS (2)
  - Haematemesis [Fatal]
  - Anaphylactic reaction [Fatal]

NARRATIVE: CASE EVENT DATE: 20180222
